FAERS Safety Report 7443236-8 (Version None)
Quarter: 2011Q2

REPORT INFORMATION
  Report Type: 
  Country: None (occurrence: None)
  Receive Date: 20110428
  Receipt Date: 20110420
  Transmission Date: 20111010
  Serious: Yes (Life-Threatening)
  Sender: FDA-Public Use
  Company Number: B0714908A

PATIENT
  Sex: Male
  Weight: 71 kg

DRUGS (2)
  1. ALKERAN [Suspect]
     Indication: STEM CELL TRANSPLANT
     Dosage: 200MGM2 PER DAY
     Route: 042
     Dates: start: 20101213, end: 20101213
  2. KYTRIL [Concomitant]
     Dosage: 3G PER DAY
     Route: 042
     Dates: start: 20101213, end: 20101213

REACTIONS (1)
  - SEPSIS [None]
